FAERS Safety Report 6787526-0 (Version None)
Quarter: 2010Q2

REPORT INFORMATION
  Report Type: 
  Country: None (occurrence: None)
  Receive Date: 20100623
  Receipt Date: 20080620
  Transmission Date: 20101027
  Serious: No
  Sender: FDA-Public Use
  Company Number: US-PFIZER INC-2006062728

PATIENT
  Sex: Male
  Weight: 77.11 kg

DRUGS (11)
  1. GENOTROPIN [Suspect]
     Indication: ENDOCRINE DISORDER
     Route: 058
  2. GENOTROPIN [Suspect]
     Indication: HYPOPITUITARISM
  3. CABERGOLINE [Suspect]
  4. HUMATROPE [Suspect]
     Indication: HYPOGONADISM
     Dates: start: 20000501
  5. HUMATROPE [Suspect]
     Indication: GROWTH HORMONE DEFICIENCY
  6. HUMATROPE [Suspect]
     Indication: PROLACTINOMA
  7. TESTOSTERONE [Suspect]
     Indication: HYPOGONADISM
  8. PARLODEL [Concomitant]
     Indication: DRUG USE FOR UNKNOWN INDICATION
     Route: 065
  9. SUDAFED 12 HOUR [Concomitant]
  10. ACETYLSALICYLIC ACID [Concomitant]
  11. PROPECIA [Concomitant]

REACTIONS (16)
  - ABNORMAL SENSATION IN EYE [None]
  - ACNE [None]
  - BLOOD TRIGLYCERIDES INCREASED [None]
  - BODY HEIGHT DECREASED [None]
  - COUGH [None]
  - EAR CONGESTION [None]
  - EAR PAIN [None]
  - MULTIPLE ALLERGIES [None]
  - MUSCLE SPASMS [None]
  - MUSCULOSKELETAL PAIN [None]
  - PAIN IN EXTREMITY [None]
  - POLLAKIURIA [None]
  - RESPIRATORY TRACT CONGESTION [None]
  - SOFT TISSUE DISORDER [None]
  - STRESS [None]
  - WEIGHT DECREASED [None]
